FAERS Safety Report 9087203 (Version 1)
Quarter: 2013Q1

REPORT INFORMATION
  Report Type: Spontaneous
  Country: US (occurrence: US)
  Receive Date: 20130131
  Receipt Date: 20130131
  Transmission Date: 20140127
  Serious: Yes (Other)
  Sender: FDA-Public Use
  Company Number: US-PFIZER INC-2013033648

PATIENT
  Sex: Female

DRUGS (1)
  1. TYGACIL [Suspect]
     Indication: POSTOPERATIVE CARE
     Dosage: UNK
     Dates: start: 201301, end: 201301

REACTIONS (2)
  - Septic shock [Unknown]
  - Klebsiella infection [Unknown]
